FAERS Safety Report 25189102 (Version 1)
Quarter: 2025Q2

REPORT INFORMATION
  Report Type: Report from Study
  Country: BR (occurrence: BR)
  Receive Date: 20250411
  Receipt Date: 20250411
  Transmission Date: 20250717
  Serious: Yes (Death, Hospitalization, Other)
  Sender: JOHNSON AND JOHNSON
  Company Number: BR-JNJFOC-20250366031

PATIENT
  Age: 75 Year
  Sex: Male
  Weight: 51 kg

DRUGS (1)
  1. TALVEY [Suspect]
     Active Substance: TALQUETAMAB-TGVS
     Indication: Plasma cell myeloma
     Route: 058
     Dates: start: 20250211, end: 20250317

REACTIONS (11)
  - Death [Fatal]
  - Endotracheal intubation [Unknown]
  - Diarrhoea [Unknown]
  - Vomiting [Unknown]
  - Feeding disorder [Unknown]
  - Disorientation [Unknown]
  - Weight decreased [Unknown]
  - Dry skin [Unknown]
  - Nausea [Unknown]
  - Constipation [Unknown]
  - Skin exfoliation [Unknown]

NARRATIVE: CASE EVENT DATE: 20250328
